FAERS Safety Report 8458492-7 (Version None)
Quarter: 2012Q2

REPORT INFORMATION
  Report Type: 
  Country: None (occurrence: None)
  Receive Date: 20120615
  Receipt Date: 20120601
  Transmission Date: 20120825
  Serious: Yes (Disabling, Other)
  Sender: FDA-Public Use
  Company Number: 2012AP001710

PATIENT
  Age: 30 Year
  Sex: Male

DRUGS (3)
  1. ERGOCALCIFEROL [Concomitant]
  2. OFLOXACIN [Suspect]
     Indication: EAR INFECTION
  3. DOXEPIN [Concomitant]

REACTIONS (3)
  - INSTILLATION SITE PAIN [None]
  - DEAFNESS NEUROSENSORY [None]
  - CYST [None]
